FAERS Safety Report 7630894-8 (Version None)
Quarter: 2011Q3

REPORT INFORMATION
  Report Type: 
  Country: None (occurrence: None)
  Receive Date: 20110724
  Receipt Date: 20110711
  Transmission Date: 20111222
  Serious: Yes (Hospitalization, Other)
  Sender: FDA-Public Use
  Company Number: DK-MYLANLABS-2011S1014437

PATIENT
  Age: 23 Year
  Sex: Female

DRUGS (15)
  1. ACETAMINOPHEN [Concomitant]
     Indication: HEADACHE
     Dates: start: 20060816
  2. PAROXETINE HCL [Concomitant]
     Indication: PRODUCT USED FOR UNKNOWN INDICATION
  3. IMOVANE [Suspect]
     Indication: INSOMNIA
     Dates: start: 20060405
  4. MIRTAZAPINE [Suspect]
     Indication: ANXIETY
     Dates: start: 20060320
  5. NORTRIPTYLINE HCL [Suspect]
     Indication: DEPRESSION
     Dates: start: 20090223
  6. IBRUPROFEN [Suspect]
     Indication: HEADACHE
     Dates: start: 20060816
  7. EFFEXOR [Suspect]
  8. PAROXETINE HCL [Suspect]
     Indication: DEPRESSION
     Dates: start: 20090223
  9. DOLOL [Suspect]
     Indication: PAIN
     Dates: start: 20060816, end: 20061201
  10. MIANSERIN [Suspect]
     Indication: DEPRESSION
     Dates: start: 20080925
  11. TRUXAL [Suspect]
     Indication: PSYCHOTIC DISORDER
     Dates: start: 20061201
  12. MIGEA [Suspect]
     Indication: MIGRAINE
     Dates: start: 20100618
  13. IBUPROFEN [Concomitant]
     Indication: PAIN
     Dates: start: 20061201
  14. PAMOL [Concomitant]
     Indication: PAIN
     Dates: start: 20061201
  15. EFFEXOR [Suspect]
     Indication: PRODUCT USED FOR UNKNOWN INDICATION
     Dates: start: 20060928

REACTIONS (10)
  - DYSPEPSIA [None]
  - OEDEMA [None]
  - DEPRESSION [None]
  - ABDOMINAL DISTENSION [None]
  - NECK PAIN [None]
  - SUICIDAL IDEATION [None]
  - GASTROOESOPHAGEAL REFLUX DISEASE [None]
  - INSOMNIA [None]
  - CONSTIPATION [None]
  - HEADACHE [None]
